FAERS Safety Report 22100624 (Version 2)
Quarter: 2023Q1

REPORT INFORMATION
  Report Type: Report from Study
  Country: ES (occurrence: ES)
  Receive Date: 20230316
  Receipt Date: 20230321
  Transmission Date: 20230417
  Serious: Yes (Other)
  Sender: FDA-Public Use
  Company Number: ES-MYLANLABS-2023M1009993

PATIENT
  Age: 60 Year
  Sex: Male

DRUGS (14)
  1. PANTOPRAZOLE [Suspect]
     Active Substance: PANTOPRAZOLE
     Dosage: 80 MG, 1X/DAY
     Route: 065
  2. CARVEDILOL [Suspect]
     Active Substance: CARVEDILOL
     Dosage: 25 MG, 1X/DAY
     Route: 065
  3. ASPIRIN [Suspect]
     Active Substance: ASPIRIN
     Dosage: 100 MG, 1X/DAY
     Route: 065
  4. SACUBITRIL\VALSARTAN [Suspect]
     Active Substance: SACUBITRIL\VALSARTAN
     Dosage: 24/26 MG, EVERY 12 HOURS
     Route: 065
  5. SACUBITRIL\VALSARTAN [Suspect]
     Active Substance: SACUBITRIL\VALSARTAN
     Dosage: 49/51 MG, EVERY 12 HOURS
     Route: 065
  6. PENTOXIFYLLINE [Suspect]
     Active Substance: PENTOXIFYLLINE
     Dosage: 1200 MG, 1X/DAY
     Route: 065
  7. ENALAPRIL [Suspect]
     Active Substance: ENALAPRIL
     Dosage: 5 MG, 1X/DAY
     Route: 065
  8. EZETIMIBE\ROSUVASTATIN [Suspect]
     Active Substance: EZETIMIBE\ROSUVASTATIN
     Dosage: UNK
     Route: 065
  9. EPLERENONE [Suspect]
     Active Substance: EPLERENONE
     Dosage: 25 MG, 1X/DAY
     Route: 065
  10. EZETIMIBE [Suspect]
     Active Substance: EZETIMIBE
     Dosage: 10 MG, 1X/DAY
     Route: 065
  11. RANOLAZINE [Suspect]
     Active Substance: RANOLAZINE
     Dosage: 1000 MG, 1X/DAY
     Route: 065
  12. ATORVASTATIN\EZETIMIBE [Suspect]
     Active Substance: ATORVASTATIN\EZETIMIBE
     Dosage: 10/10 MG
     Route: 065
  13. ATORVASTATIN\EZETIMIBE [Suspect]
     Active Substance: ATORVASTATIN\EZETIMIBE
     Dosage: 40/10 MG
     Route: 065
  14. EVOLOCUMAB [Concomitant]
     Active Substance: EVOLOCUMAB
     Dosage: 140 MG, 2/MONTH

REACTIONS (13)
  - Myocardial necrosis [Unknown]
  - Ventricular hypokinesia [Unknown]
  - Tricuspid valve incompetence [Unknown]
  - Muscle spasms [Unknown]
  - Chest pain [Unknown]
  - Heart valve stenosis [Unknown]
  - Myalgia [Recovered/Resolved]
  - Aortic bruit [Unknown]
  - Hypokinesia [Unknown]
  - Atrial enlargement [Unknown]
  - Ventricular enlargement [Unknown]
  - Bundle branch block left [Unknown]
  - Dyspnoea [Unknown]
